FAERS Safety Report 5984287-X (Version None)
Quarter: 2008Q4

REPORT INFORMATION
  Report Type: 
  Country: None (occurrence: None)
  Receive Date: 20081208
  Receipt Date: 20080311
  Transmission Date: 20090506
  Serious: No
  Sender: FDA-Public Use
  Company Number: US-AMGEN-KDL269225

PATIENT
  Sex: Female
  Weight: 63.1 kg

DRUGS (6)
  1. ENBREL [Suspect]
     Indication: RHEUMATOID ARTHRITIS
     Route: 058
  2. BUPIVACAINE [Concomitant]
  3. METHOTREXATE [Concomitant]
  4. NAPROXEN [Concomitant]
  5. ZOLPIDEM TARTRATE [Concomitant]
  6. HUMIRA [Concomitant]
     Route: 058
     Dates: start: 20040101

REACTIONS (2)
  - ADVERSE EVENT [None]
  - DRUG INEFFECTIVE [None]
